FAERS Safety Report 16440467 (Version 2)
Quarter: 2019Q2

REPORT INFORMATION
  Report Type: Spontaneous
  Country: US (occurrence: US)
  Receive Date: 20190617
  Receipt Date: 20190617
  Transmission Date: 20190711
  Serious: Yes (Other)
  Sender: FDA-Public Use
  Company Number: US-CELGENEUS-USA-20190603627

PATIENT
  Sex: Male

DRUGS (1)
  1. OTEZLA [Suspect]
     Active Substance: APREMILAST
     Indication: GENERAL PHYSICAL CONDITION ABNORMAL
     Dosage: 60 MILLIGRAM
     Route: 048
     Dates: start: 20180612

REACTIONS (3)
  - Suicidal ideation [Not Recovered/Not Resolved]
  - Rash generalised [Not Recovered/Not Resolved]
  - Depression [Not Recovered/Not Resolved]
